FAERS Safety Report 13124902 (Version 1)
Quarter: 2017Q1

REPORT INFORMATION
  Report Type: Spontaneous
  Country: US (occurrence: US)
  Receive Date: 20170114
  Receipt Date: 20170114
  Transmission Date: 20170428
  Serious: No
  Sender: FDA-Public Use
  Company Number: None

PATIENT
  Age: 46 Year
  Sex: Female
  Weight: 80.99 kg

DRUGS (4)
  1. NASACORT [Suspect]
     Active Substance: TRIAMCINOLONE ACETONIDE
  2. FLUNISOLIDE. [Suspect]
     Active Substance: FLUNISOLIDE
  3. NASONEX [Suspect]
     Active Substance: MOMETASONE FUROATE
  4. FLUTICASONE. [Suspect]
     Active Substance: FLUTICASONE

REACTIONS (1)
  - Drug ineffective [None]
